FAERS Safety Report 8554427-7 (Version None)
Quarter: 2012Q3

REPORT INFORMATION
  Report Type: 
  Country: None (occurrence: None)
  Receive Date: 20120731
  Receipt Date: 20120723
  Transmission Date: 20120928
  Serious: Yes (Other)
  Sender: FDA-Public Use
  Company Number: US-009507513-1207USA010481

PATIENT

DRUGS (1)
  1. ZOCOR [Suspect]
     Dosage: 20 MG, QPM

REACTIONS (11)
  - PYREXIA [None]
  - FACE OEDEMA [None]
  - LIP SWELLING [None]
  - DYSPHONIA [None]
  - SLEEP DISORDER [None]
  - CONTUSION [None]
  - CHEST DISCOMFORT [None]
  - RASH [None]
  - PAIN [None]
  - PRURITUS [None]
  - OEDEMA MOUTH [None]
